FAERS Safety Report 16633813 (Version 1)
Quarter: 2019Q3

REPORT INFORMATION
  Report Type: Spontaneous
  Country: US (occurrence: US)
  Receive Date: 20190725
  Receipt Date: 20190725
  Transmission Date: 20191004
  Serious: Yes (Death)
  Sender: FDA-Public Use
  Company Number: None

PATIENT
  Sex: Male

DRUGS (12)
  1. ASPIRIN. [Concomitant]
     Active Substance: ASPIRIN
  2. COLACE [Concomitant]
     Active Substance: DOCUSATE SODIUM
  3. PRAVASTATIN. [Concomitant]
     Active Substance: PRAVASTATIN
  4. AMODARONE [Concomitant]
  5. HYDROCODONE [Concomitant]
     Active Substance: HYDROCODONE
  6. LOSARTAN. [Concomitant]
     Active Substance: LOSARTAN
  7. TAMSULOSIN [Concomitant]
     Active Substance: TAMSULOSIN
  8. WARFARIN [Concomitant]
     Active Substance: WARFARIN
  9. TEMOZOLOMIDE. [Suspect]
     Active Substance: TEMOZOLOMIDE
     Indication: METASTASES TO LUNG
     Dosage: ?          OTHER FREQUENCY:DAYS 1-7 AND 15-21;?
     Route: 048
  10. METOPROLOL. [Concomitant]
     Active Substance: METOPROLOL
  11. POT CL MCRO [Concomitant]
  12. HYDRALAZINE [Concomitant]
     Active Substance: HYDRALAZINE HYDROCHLORIDE

REACTIONS (1)
  - Death [None]
